FAERS Safety Report 9224379 (Version 1)
Quarter: 2013Q2

REPORT INFORMATION
  Report Type: Spontaneous
  Country: US (occurrence: US)
  Receive Date: 20130411
  Receipt Date: 20130411
  Transmission Date: 20140414
  Serious: Yes (Hospitalization)
  Sender: FDA-Public Use
  Company Number: US-BAYER-2013-045630

PATIENT
  Age: 55 Year
  Sex: Female

DRUGS (1)
  1. GADOPENTETATE DIMEGLUMINE [Suspect]
     Indication: NUCLEAR MAGNETIC RESONANCE IMAGING
     Dosage: UNK
     Route: 037

REACTIONS (5)
  - Neurotoxicity [None]
  - Incorrect route of drug administration [None]
  - Mental status changes [None]
  - Headache [None]
  - Brain oedema [None]
